FAERS Safety Report 23127588 (Version 1)
Quarter: 2023Q4

REPORT INFORMATION
  Report Type: Spontaneous
  Country: US (occurrence: US)
  Receive Date: 20231031
  Receipt Date: 20231031
  Transmission Date: 20240109
  Serious: No
  Sender: FDA-Public Use
  Company Number: US-ABBVIE-5474209

PATIENT

DRUGS (1)
  1. RESTASIS [Suspect]
     Active Substance: CYCLOSPORINE
     Indication: Dry eye
     Dosage: 0.5 MG/ML
     Route: 047

REACTIONS (3)
  - Eyelash injury [Unknown]
  - Burning sensation [Unknown]
  - Liquid product physical issue [Unknown]
